FAERS Safety Report 9085248 (Version 1)
Quarter: 2013Q1

REPORT INFORMATION
  Report Type: Report from Study
  Country: US (occurrence: US)
  Receive Date: 20130131
  Receipt Date: 20130131
  Transmission Date: 20140127
  Serious: No
  Sender: FDA-Public Use
  Company Number: US-ABBOTT-12P-163-0996254-00

PATIENT
  Age: 50 Year
  Sex: Female

DRUGS (2)
  1. HUMIRA [Suspect]
     Indication: PSORIASIS
     Dates: start: 201108
  2. ZYRTEC [Concomitant]
     Indication: SEASONAL ALLERGY
     Dosage: 1 PILL DAILY

REACTIONS (2)
  - Drug dose omission [Not Recovered/Not Resolved]
  - Psoriasis [Not Recovered/Not Resolved]
